FAERS Safety Report 9854732 (Version 1)
Quarter: 2014Q1

REPORT INFORMATION
  Report Type: Report from Study
  Country: CA (occurrence: CA)
  Receive Date: 20140130
  Receipt Date: 20140130
  Transmission Date: 20141002
  Serious: Yes (Other)
  Sender: FDA-Public Use
  Company Number: CA-ROCHE-1341671

PATIENT
  Sex: Male

DRUGS (3)
  1. PEGASYS [Suspect]
     Indication: CHRONIC HEPATITIS C
     Dosage: 0.5 ML PRE-FILLED SYRINGE, ON 13/JUN/2013, LAST DOSE ADMINISTERED.
     Route: 058
     Dates: start: 20130129
  2. COPEGUS [Suspect]
     Indication: CHRONIC HEPATITIS C
     Dosage: 35 TABLET/WEEK, ON 13/JUN/2013, LAST DOSE ADMINISTERED.
     Route: 048
     Dates: start: 20130129
  3. VICTRELIS [Suspect]
     Indication: CHRONIC HEPATITIS C
     Dosage: ON 17/JUN/2013, LAST PILLS ADMINISTRED.
     Route: 048

REACTIONS (1)
  - White blood cell count decreased [Unknown]
